FAERS Safety Report 12432467 (Version 1)
Quarter: 2016Q2

REPORT INFORMATION
  Report Type: Spontaneous
  Country: US (occurrence: None)
  Receive Date: 20160602
  Receipt Date: 20160602
  Transmission Date: 20160815
  Serious: Yes (Disabling)
  Sender: FDA-Public Use
  Company Number: None

PATIENT
  Age: 32 Year
  Sex: Male
  Weight: 95.26 kg

DRUGS (2)
  1. TEGRETOL [Suspect]
     Active Substance: CARBAMAZEPINE
     Indication: BIPOLAR DISORDER
     Dosage: PRESCIBED 3 TIMES A DAY INJECTION AND MOUTH
     Route: 048
     Dates: start: 201511, end: 201602
  2. VITAMINS [Concomitant]
     Active Substance: VITAMINS

REACTIONS (8)
  - Victim of crime [None]
  - Victim of elder abuse [None]
  - Ankle fracture [None]
  - Tooth loss [None]
  - Head injury [None]
  - Bone disorder [None]
  - Victim of chemical submission [None]
  - Mastication disorder [None]

NARRATIVE: CASE EVENT DATE: 2015
